FAERS Safety Report 21880553 (Version 1)
Quarter: 2023Q1

REPORT INFORMATION
  Report Type: Spontaneous
  Country: ES (occurrence: ES)
  Receive Date: 20230118
  Receipt Date: 20230118
  Transmission Date: 20230417
  Serious: Yes (Hospitalization)
  Sender: FDA-Public Use
  Company Number: None

PATIENT
  Age: 80 Year
  Sex: Female

DRUGS (10)
  1. ACETAMINOPHEN [Suspect]
     Active Substance: ACETAMINOPHEN
     Indication: Pain
     Dosage: 1 GRAM, Q6H, 1GR+HH || UNIT DOSE: 4 G-GRAM
     Route: 065
     Dates: start: 20130409, end: 20130415
  2. FENTANYL [Suspect]
     Active Substance: FENTANYL
     Indication: Anaesthesia
     Dosage: 60 MICROGRAM, QD, 60MCG || UNIT DOSE 60MICROGRAMS
     Route: 065
     Dates: start: 20130409, end: 20130409
  3. PROPOFOL [Suspect]
     Active Substance: PROPOFOL
     Indication: Anaesthesia
     Dosage: 50 MILLIGRAM, QD, 50MG || DOSE UNIT: 50 MG
     Route: 065
     Dates: start: 20130409, end: 20130409
  4. MIDAZOLAM [Suspect]
     Active Substance: MIDAZOLAM
     Indication: Anaesthesia
     Dosage: 1 MILLIGRAM, QD, 1MG || UNIT DOSE: 1 MG
     Route: 065
     Dates: start: 20130409, end: 20130409
  5. ATROPINE [Suspect]
     Active Substance: ATROPINE
     Indication: Anaesthesia
     Dosage: 0.5 MILLIGRAM, 1 TOTAL || UNIT OF FREQUENCY: 0 DAY
     Route: 065
     Dates: start: 20130409, end: 20130409
  6. BUPIVACAINE [Suspect]
     Active Substance: BUPIVACAINE
     Indication: Anaesthesia
     Dosage: 10 MILLIGRAM, 1 TOTAL, 0.5 PERCENT 5 MG/ML 2 ML
     Route: 065
     Dates: start: 20130409, end: 20130409
  7. VANCOMYCIN [Concomitant]
     Active Substance: VANCOMYCIN
     Indication: Antibiotic prophylaxis
     Dosage: 1 GRAM, BID, 1GR/12HOURS || UNIT DOSE: 2 G
     Route: 065
     Dates: start: 20130409, end: 20130411
  8. INDAPAMIDE [Concomitant]
     Active Substance: INDAPAMIDE
     Indication: Hypertension
     Dosage: 2.5 MILLIGRAM, QD, 2.5MG || UNIT DOSE: 2.5 MG
     Route: 065
     Dates: start: 2003
  9. AMLODIPINE BESYLATE [Concomitant]
     Active Substance: AMLODIPINE BESYLATE
     Indication: Hypertension
     Dosage: 10 MILLIGRAM, QD, 10MG AT DINNER
     Route: 065
  10. ENOXAPARIN SODIUM [Concomitant]
     Active Substance: ENOXAPARIN SODIUM
     Indication: Thrombosis prophylaxis
     Dosage: 40 MILLIGRAM, QD, SERVING PER DOSE: 40 MG
     Route: 065
     Dates: start: 20130409

REACTIONS (1)
  - Hepatitis [Recovered/Resolved]

NARRATIVE: CASE EVENT DATE: 20130409
